FAERS Safety Report 19476636 (Version 1)
Quarter: 2021Q2

REPORT INFORMATION
  Report Type: Other
  Country: MX (occurrence: MX)
  Receive Date: 20210630
  Receipt Date: 20210630
  Transmission Date: 20210717
  Serious: Yes (Other)
  Sender: FDA-Public Use
  Company Number: MX-ROCHE-2858651

PATIENT
  Age: 41 Year
  Sex: Female
  Weight: 42 kg

DRUGS (2)
  1. COVID?19 VACCINE [Concomitant]
     Dates: start: 20210605
  2. OCREVUS [Suspect]
     Active Substance: OCRELIZUMAB
     Indication: MULTIPLE SCLEROSIS
     Dosage: OCRELIZUMAB VIAL 300MG/10ML (30MG/ML)
     Route: 042
     Dates: start: 20181123

REACTIONS (6)
  - Muscular weakness [Not Recovered/Not Resolved]
  - Discomfort [Unknown]
  - Agitation [Unknown]
  - Sleep disorder [Unknown]
  - Dyspnoea [Unknown]
  - COVID-19 [Recovered/Resolved]

NARRATIVE: CASE EVENT DATE: 202008
